FAERS Safety Report 16353921 (Version 1)
Quarter: 2019Q2

REPORT INFORMATION
  Report Type: Spontaneous
  Country: US (occurrence: US)
  Receive Date: 20190524
  Receipt Date: 20190524
  Transmission Date: 20190711
  Serious: Yes (Other)
  Sender: FDA-Public Use
  Company Number: US-HIKMA PHARMACEUTICALS USA INC.-US-H14001-19-03399

PATIENT
  Age: 57 Year
  Sex: Female

DRUGS (18)
  1. PREDNISONE. [Suspect]
     Active Substance: PREDNISONE
     Indication: SJOGREN^S SYNDROME
     Route: 065
  2. PREDNISONE. [Suspect]
     Active Substance: PREDNISONE
     Indication: TUBULOINTERSTITIAL NEPHRITIS
     Route: 065
  3. AMILORIDE [Suspect]
     Active Substance: AMILORIDE
     Indication: SJOGREN^S SYNDROME
     Route: 065
  4. PREDNISONE. [Suspect]
     Active Substance: PREDNISONE
     Route: 065
  5. PREDNISONE. [Suspect]
     Active Substance: PREDNISONE
     Route: 065
  6. AZATHIOPRINE. [Suspect]
     Active Substance: AZATHIOPRINE
     Indication: SJOGREN^S SYNDROME
     Dosage: 50-100 MG/DAY
     Route: 065
  7. POTASSIUM CHLORIDE. [Suspect]
     Active Substance: POTASSIUM CHLORIDE
     Indication: TUBULOINTERSTITIAL NEPHRITIS
     Route: 065
  8. POTASSIUM CHLORIDE. [Suspect]
     Active Substance: POTASSIUM CHLORIDE
     Route: 065
  9. SODIUM BICARBONATE. [Suspect]
     Active Substance: SODIUM BICARBONATE
     Indication: SJOGREN^S SYNDROME
     Route: 065
  10. POTASSIUM CHLORIDE. [Suspect]
     Active Substance: POTASSIUM CHLORIDE
     Route: 065
  11. HYDROXYCHLOROQUINE [Suspect]
     Active Substance: HYDROXYCHLOROQUINE
     Indication: SJOGREN^S SYNDROME
     Route: 065
  12. POTASSIUM CHLORIDE. [Suspect]
     Active Substance: POTASSIUM CHLORIDE
     Indication: SJOGREN^S SYNDROME
     Dosage: MEQ/DAY
     Route: 065
  13. SODIUM BICARBONATE. [Suspect]
     Active Substance: SODIUM BICARBONATE
     Indication: TUBULOINTERSTITIAL NEPHRITIS
  14. AMILORIDE [Suspect]
     Active Substance: AMILORIDE
     Indication: TUBULOINTERSTITIAL NEPHRITIS
  15. SUMATRIPTAN. [Concomitant]
     Active Substance: SUMATRIPTAN
     Indication: MIGRAINE
     Route: 065
  16. HYDROXYCHLOROQUINE [Suspect]
     Active Substance: HYDROXYCHLOROQUINE
     Indication: TUBULOINTERSTITIAL NEPHRITIS
  17. CITALOPRAM [Concomitant]
     Active Substance: CITALOPRAM HYDROBROMIDE
     Indication: DEPRESSION
     Route: 065
  18. AZATHIOPRINE. [Suspect]
     Active Substance: AZATHIOPRINE
     Indication: TUBULOINTERSTITIAL NEPHRITIS

REACTIONS (2)
  - Chronic kidney disease [Unknown]
  - Lipodystrophy acquired [Unknown]
